FAERS Safety Report 8445311-8 (Version None)
Quarter: 2012Q2

REPORT INFORMATION
  Report Type: 
  Country: None (occurrence: None)
  Receive Date: 20120618
  Receipt Date: 20120613
  Transmission Date: 20120825
  Serious: Yes (Death)
  Sender: FDA-Public Use
  Company Number: DE-JNJFOC-20120606930

PATIENT

DRUGS (4)
  1. CISPLATIN [Suspect]
     Indication: ADRENOCORTICAL CARCINOMA
     Dosage: ON DAYS 3 AND 4, EVERY 4 WEEKS
     Route: 042
  2. MITOTANE [Suspect]
     Indication: ADRENOCORTICAL CARCINOMA
     Dosage: ADMINISTERED CONTINUOUSLY
     Route: 048
  3. DOXORUBICIN HCL [Suspect]
     Indication: ADRENOCORTICAL CARCINOMA
     Dosage: ON DAY 1 EVERY 4 WEEKS
     Route: 042
  4. ETOPOSIDE [Suspect]
     Indication: ADRENOCORTICAL CARCINOMA
     Dosage: ON DAYS 2, 3 AND 4; EVERY 4 WEEKS
     Route: 042

REACTIONS (2)
  - HAEMORRHAGE [None]
  - OFF LABEL USE [None]
